FAERS Safety Report 22287377 (Version 2)
Quarter: 2023Q2

REPORT INFORMATION
  Report Type: Report from Study
  Country: NG (occurrence: NG)
  Receive Date: 20230505
  Receipt Date: 20230512
  Transmission Date: 20230721
  Serious: Yes (Life-Threatening, Hospitalization, Other)
  Sender: FDA-Public Use
  Company Number: NG-GBT-022145

PATIENT
  Age: 34 Year
  Sex: Male
  Weight: 50.1 kg

DRUGS (1)
  1. GBT-021601 [Suspect]
     Active Substance: GBT-021601
     Indication: Sickle cell disease
     Route: 048
     Dates: start: 20230216

REACTIONS (1)
  - Seizure [Unknown]

NARRATIVE: CASE EVENT DATE: 20230429
